FAERS Safety Report 24394921 (Version 5)
Quarter: 2024Q4

REPORT INFORMATION
  Report Type: Spontaneous
  Country: US (occurrence: US)
  Receive Date: 20241004
  Receipt Date: 20241217
  Transmission Date: 20250115
  Serious: Yes (Other)
  Sender: ALEXION PHARMACEUTICALS
  Company Number: US-AstraZeneca-CH-00709835A

PATIENT
  Age: 67 Year

DRUGS (1)
  1. IMFINZI [Suspect]
     Active Substance: DURVALUMAB

REACTIONS (8)
  - Alopecia [Unknown]
  - Rash [Not Recovered/Not Resolved]
  - Eye movement disorder [Not Recovered/Not Resolved]
  - Lung neoplasm malignant [Unknown]
  - Heart rate irregular [Unknown]
  - Dizziness [Not Recovered/Not Resolved]
  - Heart rate increased [Unknown]
  - Extrasystoles [Unknown]
